FAERS Safety Report 5576518-5 (Version None)
Quarter: 2007Q4

REPORT INFORMATION
  Report Type: 
  Country: None (occurrence: None)
  Receive Date: 20071228
  Receipt Date: 20071221
  Transmission Date: 20080405
  Serious: Yes (Hospitalization)
  Sender: FDA-Public Use
  Company Number: B0487666A

PATIENT
  Age: 67 Year
  Sex: Female
  Weight: 76 kg

DRUGS (2)
  1. TOPOTECAN [Suspect]
     Dosage: 1.34MG PER DAY
     Route: 042
     Dates: start: 20070810, end: 20070812
  2. CISPLATIN [Suspect]
     Dosage: 89.5MG PER DAY
     Route: 042
     Dates: start: 20070810, end: 20070810

REACTIONS (4)
  - ANAEMIA [None]
  - FEBRILE NEUTROPENIA [None]
  - HAEMATURIA [None]
  - THROMBOCYTOPENIA [None]
